FAERS Safety Report 14241971 (Version 13)
Quarter: 2018Q3

REPORT INFORMATION
  Report Type: Report from Study
  Country: GB (occurrence: GB)
  Receive Date: 20171201
  Receipt Date: 20180910
  Transmission Date: 20181010
  Serious: Yes (Life-Threatening, Hospitalization)
  Sender: FDA-Public Use
  Company Number: GB-ROCHE-1693796

PATIENT
  Age: 70 Year
  Sex: Male

DRUGS (4)
  1. TRAMADOL. [Suspect]
     Active Substance: TRAMADOL
     Indication: PRODUCT USED FOR UNKNOWN INDICATION
     Route: 065
  2. COCODAMOL [Concomitant]
     Active Substance: ACETAMINOPHEN\CODEINE PHOSPHATE
     Indication: BACK PAIN
     Route: 065
  3. ESBRIET [Suspect]
     Active Substance: PIRFENIDONE
     Indication: IDIOPATHIC PULMONARY FIBROSIS
     Route: 048
     Dates: start: 20150101
  4. GABAPENTIN. [Concomitant]
     Active Substance: GABAPENTIN
     Indication: BACK PAIN
     Dosage: 3 DOSAGES, 1 DAY, INCREASED DOSE 3
     Route: 065

REACTIONS (24)
  - Sepsis [Recovered/Resolved]
  - Lethargy [Recovering/Resolving]
  - Pain [Unknown]
  - Bursa disorder [Recovered/Resolved]
  - Gout [Unknown]
  - Anxiety [Unknown]
  - Intestinal polyp [Unknown]
  - Sensory loss [Not Recovered/Not Resolved]
  - Abnormal dreams [Not Recovered/Not Resolved]
  - Hypoaesthesia [Not Recovered/Not Resolved]
  - Anorectal discomfort [Unknown]
  - Dyspnoea exertional [Unknown]
  - Diarrhoea [Recovered/Resolved]
  - Asthma [Unknown]
  - Sciatica [Recovering/Resolving]
  - Lower respiratory tract infection [Recovered/Resolved]
  - Discomfort [Unknown]
  - Dry skin [Not Recovered/Not Resolved]
  - Brain neoplasm [Recovered/Resolved]
  - Fatigue [Unknown]
  - Renal impairment [Unknown]
  - Muscle strain [Unknown]
  - Carpal tunnel syndrome [Not Recovered/Not Resolved]
  - Musculoskeletal disorder [Unknown]

NARRATIVE: CASE EVENT DATE: 20170113
